FAERS Safety Report 22089466 (Version 1)
Quarter: 2023Q1

REPORT INFORMATION
  Report Type: Spontaneous
  Country: CN (occurrence: CN)
  Receive Date: 20230313
  Receipt Date: 20230313
  Transmission Date: 20230417
  Serious: Yes (Hospitalization, Disabling, Other)
  Sender: FDA-Public Use
  Company Number: CN-009507513-2303CHN003080

PATIENT
  Age: 56 Year
  Sex: Male
  Weight: 67 kg

DRUGS (5)
  1. JANUVIA [Suspect]
     Active Substance: SITAGLIPTIN PHOSPHATE
     Indication: Diabetes mellitus
     Dosage: 100 MG (1 TABLET), ONCE A DAY IN THE MORNING; STRENGTH:100MG X7 TABLETS
     Route: 048
     Dates: start: 20200807, end: 20210203
  2. GLICLAZIDE [Suspect]
     Active Substance: GLICLAZIDE
     Indication: Diabetes mellitus
     Dosage: 60 MG (2 TABLETS ON AN EMPTY STOMACH EVERY MORNING); STRENGTH: 30MG X30 TABLETS
     Route: 048
     Dates: start: 20140610, end: 20210203
  3. ACARBOSE [Suspect]
     Active Substance: ACARBOSE
     Indication: Diabetes mellitus
     Dosage: 50 MG (1 CAPSULE), THREE TIMES A DAY, AT MEALS; STRENGTH: 30MG X30 TABLETS
     Route: 048
     Dates: start: 20140610, end: 20210203
  4. NIFEDIPINE [Suspect]
     Active Substance: NIFEDIPINE
     Indication: Hypertension
     Dosage: 30 MG (1 TABLET), ONCE A DAY, AFTER BREAKFAST IN THE MORNING; STRENGTH: 30MGX14 TABLETS
     Route: 048
     Dates: start: 20191015, end: 20210203
  5. METFORMIN HYDROCHLORIDE [Concomitant]
     Active Substance: METFORMIN HYDROCHLORIDE
     Indication: Diabetes mellitus
     Dosage: 2 TABLETS, TWICE A DAY, HALF AN HOUR BEFORE MEALS; STRENGTH: 0.5GX20 TABLETS
     Route: 048
     Dates: start: 20140610, end: 20210203

REACTIONS (1)
  - Hepatitis acute [Recovering/Resolving]

NARRATIVE: CASE EVENT DATE: 20210203
